FAERS Safety Report 4467498-4 (Version None)
Quarter: 2004Q4

REPORT INFORMATION
  Report Type: 
  Country: None (occurrence: None)
  Receive Date: 20041006
  Receipt Date: 20041001
  Transmission Date: 20050328
  Serious: Yes (Death, Life-Threatening)
  Sender: FDA-Public Use
  Company Number: US-MERCK-0410USA00126

PATIENT
  Age: 83 Year
  Sex: Female

DRUGS (13)
  1. TYLENOL [Concomitant]
     Route: 048
  2. TYLENOL W/ CODEINE NO. 3 [Concomitant]
     Route: 065
  3. TYLENOL PM [Concomitant]
     Route: 065
  4. OS-CAL [Concomitant]
     Route: 065
  5. LEXAPRO [Concomitant]
     Route: 065
  6. SYNVISC [Concomitant]
     Route: 051
     Dates: start: 20040825
  7. SYNVISC [Concomitant]
     Route: 051
     Dates: start: 20040908
  8. SYNVISC [Concomitant]
     Route: 051
     Dates: start: 20040923
  9. PREVACID [Concomitant]
     Route: 065
  10. ATIVAN [Concomitant]
     Route: 065
  11. MORPHINE SULFATE [Concomitant]
     Route: 065
  12. VIOXX [Suspect]
     Indication: ARTHRITIS
     Route: 048
     Dates: start: 20040611
  13. VALPROIC ACID [Concomitant]
     Route: 048

REACTIONS (6)
  - ANOREXIA [None]
  - CEREBROVASCULAR ACCIDENT [None]
  - DEPRESSED LEVEL OF CONSCIOUSNESS [None]
  - HYPERHIDROSIS [None]
  - LOSS OF CONSCIOUSNESS [None]
  - PYREXIA [None]
